FAERS Safety Report 18305969 (Version 2)
Quarter: 2020Q4

REPORT INFORMATION
  Report Type: Spontaneous
  Country: US (occurrence: US)
  Receive Date: 20200924
  Receipt Date: 20201015
  Transmission Date: 20210113
  Serious: Yes (Hospitalization, Other)
  Sender: FDA-Public Use
  Company Number: US-DRREDDYS-USA/USA/20/0126999

PATIENT
  Age: 59 Year
  Sex: Female
  Weight: 81 kg

DRUGS (8)
  1. EFFEXOR [Concomitant]
     Active Substance: VENLAFAXINE HYDROCHLORIDE
     Indication: PRODUCT USED FOR UNKNOWN INDICATION
  2. SPIRONOLACTONE. [Concomitant]
     Active Substance: SPIRONOLACTONE
     Indication: PRODUCT USED FOR UNKNOWN INDICATION
  3. OLANZAPINE TABLETS 2.5 MG, 5 MG, 7.5 MG, 10 MG [Suspect]
     Active Substance: OLANZAPINE
     Indication: MENINGIOMA
  4. OLANZAPINE TABLETS 2.5 MG, 5 MG, 7.5 MG, 10 MG [Suspect]
     Active Substance: OLANZAPINE
     Indication: SCHIZOPHRENIA
     Dosage: 4 YEARS AGO
     Route: 048
  5. VITAMIN D [Concomitant]
     Active Substance: VITAMIN D NOS
     Indication: PRODUCT USED FOR UNKNOWN INDICATION
  6. METOPROLOL SUCCINATE. [Concomitant]
     Active Substance: METOPROLOL SUCCINATE
     Indication: PRODUCT USED FOR UNKNOWN INDICATION
  7. OLANZAPINE TABLETS 2.5 MG, 5 MG, 7.5 MG, 10 MG [Suspect]
     Active Substance: OLANZAPINE
     Indication: MULTIPLE SCLEROSIS
  8. LISINOPRIL. [Concomitant]
     Active Substance: LISINOPRIL
     Indication: PRODUCT USED FOR UNKNOWN INDICATION

REACTIONS (15)
  - Lacunar infarction [Unknown]
  - Neck pain [Unknown]
  - Malaise [Unknown]
  - Cerebrovascular accident [Unknown]
  - Carpal tunnel syndrome [Unknown]
  - Hypertension [Unknown]
  - Pancreatitis [Unknown]
  - Product use in unapproved indication [Unknown]
  - End stage renal disease [Unknown]
  - Cervical radiculopathy [Unknown]
  - White matter lesion [Unknown]
  - Hypercholesterolaemia [Unknown]
  - Sleep apnoea syndrome [Not Recovered/Not Resolved]
  - Weight increased [Unknown]
  - Dizziness [Unknown]

NARRATIVE: CASE EVENT DATE: 2019
